FAERS Safety Report 4514165-4 (Version None)
Quarter: 2004Q4

REPORT INFORMATION
  Report Type: 
  Country: None (occurrence: None)
  Receive Date: 20041129
  Receipt Date: 20041116
  Transmission Date: 20050328
  Serious: Yes (Other)
  Sender: FDA-Public Use
  Company Number: 2004093424

PATIENT
  Age: 39 Year
  Sex: Male
  Weight: 88.4514 kg

DRUGS (2)
  1. TARTAR CONTROL LISTERINE MOUTHWASH (MENTHOL, METHYL SALICYLATE, EUCALY [Suspect]
     Indication: DENTAL DISORDER PROPHYLAXIS
     Dosage: MOUTHFUL QD OR BID, ORAL TOPICAL
     Route: 048
     Dates: start: 20041025, end: 20040101
  2. METFORMIN HCL [Concomitant]

REACTIONS (1)
  - HYPERSENSITIVITY [None]
